FAERS Safety Report 24903177 (Version 1)
Quarter: 2025Q1

REPORT INFORMATION
  Report Type: Spontaneous
  Country: CA (occurrence: CA)
  Receive Date: 20250130
  Receipt Date: 20250130
  Transmission Date: 20250409
  Serious: Yes (Other)
  Sender: ROCHE
  Company Number: CA-002147023-NVSC2025CA011958

PATIENT
  Age: 43 Year
  Sex: Male

DRUGS (13)
  1. OMALIZUMAB [Suspect]
     Active Substance: OMALIZUMAB
     Indication: Chronic spontaneous urticaria
     Dosage: 150 MG, Q3W
     Route: 050
  2. OMALIZUMAB [Suspect]
     Active Substance: OMALIZUMAB
     Dosage: 150 MG, Q3W
     Route: 050
  3. OMALIZUMAB [Suspect]
     Active Substance: OMALIZUMAB
     Route: 050
  4. OMALIZUMAB [Suspect]
     Active Substance: OMALIZUMAB
     Dosage: 300 MG, Q3W
     Route: 050
  5. OMALIZUMAB [Suspect]
     Active Substance: OMALIZUMAB
     Dosage: 300 MG, Q4W
     Route: 050
  6. OMALIZUMAB [Suspect]
     Active Substance: OMALIZUMAB
     Dosage: 300 MG, Q3W
     Route: 050
  7. OMALIZUMAB [Suspect]
     Active Substance: OMALIZUMAB
     Dosage: 300 MG, Q3W
     Route: 050
  8. OMALIZUMAB [Suspect]
     Active Substance: OMALIZUMAB
     Dosage: 300 MG, Q3W
     Route: 050
  9. OMALIZUMAB [Suspect]
     Active Substance: OMALIZUMAB
     Dosage: 300 MG, Q3W
     Route: 050
  10. OMALIZUMAB [Suspect]
     Active Substance: OMALIZUMAB
     Dosage: 300 MG, Q3W
     Route: 050
  11. OMALIZUMAB [Suspect]
     Active Substance: OMALIZUMAB
     Dosage: 300 MG, Q4W
     Route: 065
  12. OMALIZUMAB [Suspect]
     Active Substance: OMALIZUMAB
     Route: 065
  13. OMALIZUMAB [Suspect]
     Active Substance: OMALIZUMAB
     Route: 065

REACTIONS (10)
  - Cardiac murmur [Not Recovered/Not Resolved]
  - Insomnia [Not Recovered/Not Resolved]
  - Pruritus [Not Recovered/Not Resolved]
  - Swelling face [Not Recovered/Not Resolved]
  - Thermal burn [Not Recovered/Not Resolved]
  - Urticaria [Not Recovered/Not Resolved]
  - Weight decreased [Not Recovered/Not Resolved]
  - Weight increased [Not Recovered/Not Resolved]
  - Product prescribing error [Unknown]
  - Off label use [Unknown]
